FAERS Safety Report 5347899-2 (Version None)
Quarter: 2007Q2

REPORT INFORMATION
  Report Type: 
  Country: None (occurrence: None)
  Receive Date: 20070514
  Receipt Date: 20070223
  Transmission Date: 20071010
  Serious: Yes (Other)
  Sender: FDA-Public Use
  Company Number: 34715

PATIENT
  Age: 60 Year
  Sex: Female
  Weight: 127.0072 kg

DRUGS (1)
  1. PROPOFOL [Suspect]
     Indication: COLONOSCOPY
     Dosage: 29 ML/IVP
     Route: 042
     Dates: start: 20070223

REACTIONS (1)
  - DRUG INEFFECTIVE [None]
